FAERS Safety Report 9057240 (Version 1)
Quarter: 2013Q1

REPORT INFORMATION
  Report Type: Report from Study
  Country: US (occurrence: US)
  Receive Date: 20130131
  Receipt Date: 20130131
  Transmission Date: 20140127
  Serious: Yes (Other)
  Sender: FDA-Public Use
  Company Number: US-GLAXOSMITHKLINE-A1010143A

PATIENT
  Age: 73 Year
  Sex: Female

DRUGS (3)
  1. ELTROMBOPAG [Suspect]
     Indication: THROMBOCYTOPENIA
     Dates: start: 20120822
  2. CYCLOSPORINE [Suspect]
     Indication: APLASTIC ANAEMIA
     Dates: start: 20120809
  3. ATG [Suspect]
     Indication: APLASTIC ANAEMIA
     Dates: start: 20120809

REACTIONS (1)
  - Squamous cell carcinoma [Unknown]
